FAERS Safety Report 9640692 (Version 1)
Quarter: 2013Q4

REPORT INFORMATION
  Report Type: Report from Study
  Country: US (occurrence: US)
  Receive Date: 20131023
  Receipt Date: 20131023
  Transmission Date: 20140711
  Serious: No
  Sender: FDA-Public Use
  Company Number: US-ABBVIE-13P-163-1147239-00

PATIENT
  Age: 23 Year
  Sex: Female

DRUGS (6)
  1. LUPRON DEPOT [Suspect]
     Indication: ENDOMETRIOSIS
     Dates: start: 20130820
  2. NEXIUM [Concomitant]
     Indication: PRODUCT USED FOR UNKNOWN INDICATION
     Dosage: 40MG DAILY
  3. PRENATAL VITAMIN [Concomitant]
     Indication: PRODUCT USED FOR UNKNOWN INDICATION
     Dosage: DAILY
  4. PROBIOTICS [Concomitant]
     Indication: PRODUCT USED FOR UNKNOWN INDICATION
     Dosage: DAILY
  5. MAGNESIUM [Concomitant]
     Indication: PRODUCT USED FOR UNKNOWN INDICATION
     Dosage: 400MG DAILY
  6. VITAMIN D [Concomitant]
     Indication: PRODUCT USED FOR UNKNOWN INDICATION
     Dosage: 1000 IU DAILY

REACTIONS (7)
  - Endometriosis [Recovered/Resolved]
  - Endometriosis [Unknown]
  - Menorrhagia [Unknown]
  - Dyspepsia [Unknown]
  - Hot flush [Not Recovered/Not Resolved]
  - Metrorrhagia [Recovered/Resolved]
  - Nausea [Unknown]
